FAERS Safety Report 15499986 (Version 1)
Quarter: 2018Q4

REPORT INFORMATION
  Report Type: Spontaneous
  Country: US (occurrence: US)
  Receive Date: 20181015
  Receipt Date: 20181015
  Transmission Date: 20190205
  Serious: No
  Sender: FDA-Public Use
  Company Number: US-UNIQUE PHARMACEUTICAL LABORATORIES-2017RIS00320

PATIENT
  Sex: Male

DRUGS (1)
  1. CETIRIZINE HYDROCHLORIDE. [Suspect]
     Active Substance: CETIRIZINE HYDROCHLORIDE
     Dosage: UNK

REACTIONS (4)
  - Rash [Unknown]
  - Pruritus [Unknown]
  - Allergic reaction to excipient [Unknown]
  - Drug ineffective for unapproved indication [Unknown]
